FAERS Safety Report 13658731 (Version 1)
Quarter: 2017Q2

REPORT INFORMATION
  Report Type: Spontaneous
  Country: JP (occurrence: JP)
  Receive Date: 20170616
  Receipt Date: 20170616
  Transmission Date: 20170830
  Serious: Yes (Death)
  Sender: FDA-Public Use
  Company Number: JP-ROCHE-1951540

PATIENT
  Age: 9 Decade
  Sex: Female

DRUGS (2)
  1. METHOTREXATE. [Concomitant]
     Active Substance: METHOTREXATE
     Dosage: DOSAGE IS UNCERTAIN.
     Route: 065
  2. ACTEMRA [Suspect]
     Active Substance: TOCILIZUMAB
     Indication: RHEUMATOID ARTHRITIS
     Dosage: DOSAGE IS UNCERTAIN.?MOST RECENT DOSE: DEC/2016
     Route: 041
     Dates: start: 2011

REACTIONS (2)
  - Pneumonia [Fatal]
  - Dyspnoea [Fatal]

NARRATIVE: CASE EVENT DATE: 201612
